FAERS Safety Report 19439436 (Version 1)
Quarter: 2021Q2

REPORT INFORMATION
  Report Type: Spontaneous
  Country: US (occurrence: US)
  Receive Date: 20210618
  Receipt Date: 20210618
  Transmission Date: 20210717
  Serious: Yes (Hospitalization, Other)
  Sender: FDA-Public Use
  Company Number: US-INSUD PHARMA-2106US00684

PATIENT

DRUGS (1)
  1. TESTOSTERONE. [Suspect]
     Active Substance: TESTOSTERONE
     Indication: GENDER REASSIGNMENT THERAPY
     Dosage: 200 MILLIGRAM, BIMONTHLY INTRAMUSCULAR INJECTIONS
     Route: 030

REACTIONS (6)
  - Rhinorrhoea [Recovered/Resolved]
  - Bone erosion [Recovered/Resolved]
  - Cerebrospinal fluid leakage [Recovered/Resolved]
  - Headache [Unknown]
  - Encephalocele [Recovered/Resolved]
  - Idiopathic intracranial hypertension [Unknown]
